FAERS Safety Report 11195111 (Version 1)
Quarter: 2015Q2

REPORT INFORMATION
  Report Type: Spontaneous
  Country: US (occurrence: None)
  Receive Date: 20150615
  Receipt Date: 20150615
  Transmission Date: 20150821
  Serious: Yes (Other)
  Sender: FDA-Public Use
  Company Number: None

PATIENT
  Age: 67 Year
  Sex: Female
  Weight: 95.26 kg

DRUGS (3)
  1. TRAMADOL 50 MG ZYDUS [Suspect]
     Active Substance: TRAMADOL
     Indication: KNEE ARTHROPLASTY
     Dosage: 1-2 PILLS
     Route: 048
     Dates: start: 20150605, end: 20150610
  2. TRAMADOL 50 MG ZYDUS [Suspect]
     Active Substance: TRAMADOL
     Dosage: 1-2 PILLS
     Route: 048
     Dates: start: 20150605, end: 20150610
  3. ZYRTEC [Concomitant]
     Active Substance: CETIRIZINE HYDROCHLORIDE

REACTIONS (2)
  - Nausea [None]
  - Seizure [None]

NARRATIVE: CASE EVENT DATE: 20150610
